FAERS Safety Report 6012698-5 (Version None)
Quarter: 2008Q4

REPORT INFORMATION
  Report Type: 
  Country: None (occurrence: None)
  Receive Date: 20081218
  Receipt Date: 20081209
  Transmission Date: 20090506
  Serious: Yes (Other)
  Sender: FDA-Public Use
  Company Number: US-AMGEN-QUU323017

PATIENT
  Age: 76 Year
  Sex: Male

DRUGS (4)
  1. ENBREL [Suspect]
     Indication: RHEUMATOID ARTHRITIS
  2. METHOTREXATE [Concomitant]
  3. DIGOXIN [Concomitant]
  4. COUMADIN [Concomitant]

REACTIONS (6)
  - ATRIAL FIBRILLATION [None]
  - CONVULSION [None]
  - HEAD INJURY [None]
  - LOSS OF CONSCIOUSNESS [None]
  - SINUSITIS [None]
  - SUBDURAL HAEMATOMA [None]
